FAERS Safety Report 20676612 (Version 1)
Quarter: 2022Q2

REPORT INFORMATION
  Report Type: Report from Study
  Country: US (occurrence: None)
  Receive Date: 20220406
  Receipt Date: 20220406
  Transmission Date: 20220720
  Serious: Yes (Other)
  Sender: FDA-Public Use
  Company Number: US-Merck Healthcare KGaA-9310269

PATIENT
  Sex: Male

DRUGS (3)
  1. REBIF [Suspect]
     Active Substance: INTERFERON BETA-1A
     Indication: Product used for unknown indication
     Dates: start: 20031203, end: 20071207
  2. REBIF [Suspect]
     Active Substance: INTERFERON BETA-1A
     Dates: start: 20080818, end: 20080918
  3. REBIF [Suspect]
     Active Substance: INTERFERON BETA-1A
     Dosage: REBIF PREFILLED SYRINGE
     Route: 058
     Dates: start: 20090617, end: 20100322

REACTIONS (2)
  - Precancerous skin lesion [Unknown]
  - Melanocytic naevus [Unknown]
